FAERS Safety Report 7284182-2 (Version None)
Quarter: 2011Q1

REPORT INFORMATION
  Report Type: 
  Country: None (occurrence: None)
  Receive Date: 20110127
  Receipt Date: 20110107
  Transmission Date: 20110831
  Serious: Yes (Other)
  Sender: FDA-Public Use
  Company Number: 2010P1003488

PATIENT
  Age: 70 Year
  Sex: Female
  Weight: 96.1626 kg

DRUGS (15)
  1. NATEGLINIDE [Concomitant]
  2. COLCHICINE [Concomitant]
  3. FERROUS SULFATE TAB [Concomitant]
  4. FUROSEMIDE [Concomitant]
  5. BUSPIRONE HCL [Concomitant]
  6. WARFARIN SODIUM [Suspect]
     Indication: CARDIAC FIBRILLATION
     Dosage: 4 MG;BID;PO
     Route: 048
     Dates: start: 20100801
  7. WARFARIN SODIUM [Suspect]
     Indication: CARDIOMYOPATHY
     Dosage: 4 MG;BID;PO
     Route: 048
     Dates: start: 20100801
  8. ISOSORBIDE M ER [Concomitant]
  9. POTASSIUM CHLOIRDE ER [Concomitant]
  10. CARVEDILOL [Concomitant]
  11. TRAMADOL [Concomitant]
  12. LOSARTAN POTASSIUM [Concomitant]
  13. LORATADINE [Concomitant]
  14. CRESTOR [Concomitant]
  15. TEKTURNA [Concomitant]

REACTIONS (3)
  - TRANSIENT ISCHAEMIC ATTACK [None]
  - INTERNATIONAL NORMALISED RATIO DECREASED [None]
  - FATIGUE [None]
